FAERS Safety Report 7305544-0 (Version None)
Quarter: 2011Q1

REPORT INFORMATION
  Report Type: 
  Country: None (occurrence: None)
  Receive Date: 20110222
  Receipt Date: 20100802
  Transmission Date: 20110831
  Serious: No
  Sender: FDA-Public Use
  Company Number: US-MYLANLABS-2010S1014200

PATIENT
  Age: 38 Year
  Sex: Female

DRUGS (7)
  1. ALPRAZOLAM [Suspect]
     Indication: PANIC ATTACK
     Route: 048
     Dates: start: 20100731, end: 20100731
  2. ALPRAZOLAM [Suspect]
     Route: 048
  3. FLEXERIL [Concomitant]
  4. CYMBALTA [Concomitant]
  5. ALPRAZOLAM [Suspect]
     Indication: ANXIETY
     Route: 048
     Dates: start: 20100731, end: 20100731
  6. ALPRAZOLAM [Suspect]
     Route: 048
  7. TRAMADOL HCL [Concomitant]

REACTIONS (3)
  - DRUG INEFFECTIVE [None]
  - PANIC ATTACK [None]
  - INHIBITORY DRUG INTERACTION [None]
